FAERS Safety Report 8931729 (Version 2)
Quarter: 2013Q1

REPORT INFORMATION
  Report Type: Report from Study
  Country: JP (occurrence: JP)
  Receive Date: 20121128
  Receipt Date: 20130322
  Transmission Date: 20140127
  Serious: Yes (Hospitalization)
  Sender: FDA-Public Use
  Company Number: JP-009507513-1208JPN002631

PATIENT
  Age: 63 Year
  Sex: Female
  Weight: 38 kg

DRUGS (5)
  1. PEGINTRON [Suspect]
     Indication: CHRONIC HEPATITIS C
     Dosage: 1.5 MICROGRAM PER KILOGRAM, QW
     Route: 058
     Dates: start: 20120511
  2. PEGINTRON [Suspect]
     Dosage: 1.25 MICROGRAM PER KILOGRAM, UNK
     Route: 058
     Dates: end: 20120824
  3. REBETOL [Suspect]
     Indication: CHRONIC HEPATITIS C
     Dosage: 400 MG, QD
     Route: 048
     Dates: start: 20120511, end: 20120607
  4. REBETOL [Suspect]
     Dosage: 200 MG, QD
     Route: 048
     Dates: start: 20120608, end: 20120824
  5. TELAVIC [Suspect]
     Indication: CHRONIC HEPATITIS C
     Dosage: 1500 MG, QD
     Route: 048
     Dates: start: 20120511, end: 20120621

REACTIONS (2)
  - Renal disorder [Recovered/Resolved]
  - Decreased appetite [Recovered/Resolved]
